FAERS Safety Report 9668862 (Version 2)
Quarter: 2014Q1

REPORT INFORMATION
  Report Type: Report from Study
  Country: US (occurrence: US)
  Receive Date: 20131105
  Receipt Date: 20140306
  Transmission Date: 20141002
  Serious: Yes (Other)
  Sender: FDA-Public Use
  Company Number: PHEH2013US022571

PATIENT
  Age: 73 Year
  Sex: Female
  Weight: 83.45 kg

DRUGS (33)
  1. AFINITOR [Suspect]
     Indication: RENAL CELL CARCINOMA
     Dosage: 5 MG, DAILY
     Route: 048
     Dates: start: 20130726, end: 20130803
  2. SUTENT [Concomitant]
     Dosage: 3 DF, DAILY
     Route: 048
  3. AMOXICILLIN [Concomitant]
     Dosage: 2 G, DAILY
     Route: 048
  4. ANALPRAM HC [Concomitant]
  5. BENADRYL [Concomitant]
     Dosage: 25 MG, UNK
     Route: 048
  6. CENTRUM SILVER [Concomitant]
     Dosage: 1 DF, QD
     Route: 048
  7. DERMADEX [Concomitant]
     Dosage: 50 MG, DAILY
     Route: 048
  8. ENDOCET [Concomitant]
     Indication: PAIN
  9. ESTRADIOL [Concomitant]
     Dosage: 2 MG, DAILY
     Route: 048
  10. FOLIC ACID [Concomitant]
     Dosage: 1 MG, DAILY
     Route: 048
  11. GENTEAL [Concomitant]
  12. GLYCOPYRROLATE [Concomitant]
     Indication: DIARRHOEA
     Dosage: 2 MG, QD
     Route: 048
  13. ISOSORBIDE MONONITRATE [Concomitant]
     Dosage: 120 MG, QD
     Route: 048
  14. K-DUR [Concomitant]
     Dosage: 20 MEQ, BID
     Route: 048
  15. MEDROL [Concomitant]
     Dosage: 32 MG,
     Route: 048
  16. METHOTREXATE SODIUM [Concomitant]
  17. METHYLPREDNISOLONE [Concomitant]
  18. MIRAPEX [Concomitant]
     Dosage: 0.25 MG, DAILY
  19. MS CONTIN [Concomitant]
     Dosage: 60 MG, DAILY
  20. MS CONTIN [Concomitant]
     Dosage: 100 MG, DAILY
  21. NEXIUM [Concomitant]
     Dosage: 40 MG, QD
     Route: 048
  22. NORVASC [Concomitant]
     Dosage: 5 MG, QD
     Route: 048
  23. NUVIGIL [Concomitant]
     Dosage: 250 MG
     Route: 048
  24. PROBIOTIC [Concomitant]
  25. RITALIN [Concomitant]
     Dosage: 10 MG, BID
     Route: 048
  26. SYNTHROID [Concomitant]
  27. TUMS [Concomitant]
     Dosage: 2 DF, QD
     Route: 048
  28. VALIUM [Concomitant]
     Dosage: 2 DF, QD
     Route: 048
  29. WELLBUTRIN SR [Concomitant]
     Dosage: 200 MG, BID
     Route: 048
  30. XYLOCAINE [Concomitant]
  31. ZEBETA [Concomitant]
     Dosage: 0.5 DF, UNK
     Route: 048
  32. ZOFRAN [Concomitant]
     Dosage: 1 DF, Q8H
     Route: 048
  33. XGEVA [Concomitant]

REACTIONS (15)
  - Oedema peripheral [Recovered/Resolved]
  - Rash [Recovered/Resolved]
  - Blood glucose increased [Unknown]
  - Amnesia [Unknown]
  - Myalgia [Unknown]
  - Paraesthesia [Unknown]
  - Incontinence [Unknown]
  - Tremor [Unknown]
  - Confusional state [Unknown]
  - Chest pain [Recovering/Resolving]
  - Palpitations [Unknown]
  - Back pain [Unknown]
  - Arthralgia [Unknown]
  - Fatigue [Unknown]
  - Nausea [Not Recovered/Not Resolved]
